FAERS Safety Report 19420534 (Version 1)
Quarter: 2021Q2

REPORT INFORMATION
  Report Type: Spontaneous
  Country: FR (occurrence: FR)
  Receive Date: 20210616
  Receipt Date: 20210616
  Transmission Date: 20210717
  Serious: Yes (Hospitalization, Other)
  Sender: FDA-Public Use
  Company Number: FR-AUROBINDO-AUR-APL-2021-024546

PATIENT
  Age: 51 Year
  Sex: Male
  Weight: 67 kg

DRUGS (11)
  1. LANSOPRAZOLE. [Suspect]
     Active Substance: LANSOPRAZOLE
     Indication: PROPHYLAXIS AGAINST GASTROINTESTINAL ULCER
     Dosage: 30 MILLIGRAM, ONCE A DAY
     Route: 048
     Dates: start: 20210403
  2. MEROPENEM. [Suspect]
     Active Substance: MEROPENEM
     Indication: ANTIBIOTIC PROPHYLAXIS
     Dosage: 1 GRAM, ONCE A DAY
     Route: 042
     Dates: start: 20210401, end: 20210402
  3. PROPOFOL. [Suspect]
     Active Substance: PROPOFOL
     Indication: SEDATION
     Dosage: UNK (0.20 ML/TIME)
     Route: 042
     Dates: start: 20210401, end: 20210521
  4. AMOXICILLIN. [Suspect]
     Active Substance: AMOXICILLIN
     Indication: ANTIBIOTIC PROPHYLAXIS
     Dosage: 3 GRAM, ONCE A DAY
     Route: 065
     Dates: start: 20210415, end: 20210422
  5. HEPARIN [Suspect]
     Active Substance: HEPARIN SODIUM
     Indication: THROMBOSIS PROPHYLAXIS
     Dosage: 6000 INTERNATIONAL UNIT, ONCE A DAY
     Route: 058
     Dates: start: 20210316, end: 20210414
  6. CIPROFLOXACIN. [Suspect]
     Active Substance: CIPROFLOXACIN
     Indication: ANTIBIOTIC PROPHYLAXIS
     Dosage: 400 MILLIGRAM, ONCE A DAY
     Route: 042
     Dates: start: 20210402, end: 20210406
  7. INSULINE [Suspect]
     Active Substance: INSULIN NOS
     Indication: INSULIN THERAPY
     Dosage: 100 IU/ML (DEPENDING ON BLOOD GLUCOSE )
     Route: 058
     Dates: start: 20210406, end: 20210409
  8. ERTAPENEM. [Suspect]
     Active Substance: ERTAPENEM SODIUM
     Indication: ANTIBIOTIC PROPHYLAXIS
     Dosage: UNK
     Route: 042
     Dates: start: 20210331, end: 20210331
  9. SUFENTANIL [Suspect]
     Active Substance: SUFENTANIL
     Indication: SEDATION
     Dosage: 0.5 ML/TIME
     Route: 042
     Dates: start: 20210401
  10. IMIPENEM [Suspect]
     Active Substance: IMIPENEM
     Indication: ANTIBIOTIC PROPHYLAXIS
     Dosage: 2 GRAM, ONCE A DAY
     Route: 042
     Dates: start: 20210420, end: 20210421
  11. IOMERON [Suspect]
     Active Substance: IOMEPROL
     Indication: COMPUTERISED TOMOGRAM
     Dosage: UNK,(DOSE UNIQUE)
     Route: 042
     Dates: start: 20210420, end: 20210420

REACTIONS (2)
  - Drug reaction with eosinophilia and systemic symptoms [Recovering/Resolving]
  - Rash morbilliform [Recovering/Resolving]

NARRATIVE: CASE EVENT DATE: 20210406
